FAERS Safety Report 14656107 (Version 2)
Quarter: 2018Q2

REPORT INFORMATION
  Report Type: Spontaneous
  Country: PK (occurrence: PK)
  Receive Date: 20180319
  Receipt Date: 20180402
  Transmission Date: 20180711
  Serious: Yes (Death)
  Sender: FDA-Public Use
  Company Number: PHHY2018PK045808

PATIENT
  Age: 14 Year
  Sex: Female

DRUGS (2)
  1. TEGRAL [Suspect]
     Active Substance: CARBAMAZEPINE
     Indication: EPILEPSY
     Dosage: 5 ML, BID
     Route: 048
     Dates: start: 20180226, end: 20180303
  2. EPIVAL [Concomitant]
     Active Substance: DIVALPROEX SODIUM
     Indication: EPILEPSY
     Dosage: 10 ML, BID
     Route: 048
     Dates: start: 20150112

REACTIONS (3)
  - Pyrexia [Fatal]
  - Vomiting [Fatal]
  - Stevens-Johnson syndrome [Fatal]
